FAERS Safety Report 5418486-2 (Version None)
Quarter: 2007Q3

REPORT INFORMATION
  Report Type: 
  Country: None (occurrence: None)
  Receive Date: 20070817
  Receipt Date: 20070810
  Transmission Date: 20080115
  Serious: Yes (Hospitalization)
  Sender: FDA-Public Use
  Company Number: US-BOEHRINGER INGELHEIM PHARMACEUTICALS, INC.-2006-BP-10344BP

PATIENT
  Sex: Male

DRUGS (58)
  1. MIRAPEX [Suspect]
     Indication: RESTLESS LEGS SYNDROME
     Route: 048
     Dates: start: 19980701, end: 20041201
  2. LIPITOR [Concomitant]
     Indication: RESTLESS LEGS SYNDROME
     Dates: end: 20050527
  3. BEXTRA [Concomitant]
     Indication: RESTLESS LEGS SYNDROME
     Dates: start: 20020101
  4. BEXTRA [Concomitant]
     Indication: ARTHRALGIA
  5. CANNABIS [Concomitant]
  6. DIOVAN HCT [Concomitant]
     Indication: HYPERTENSION
     Dates: start: 20020101
  7. DIOVAN [Concomitant]
     Indication: HYPERTENSION
     Dates: end: 20061124
  8. WELLBUTRIN [Concomitant]
  9. NEURONTIN [Concomitant]
  10. ASPIRIN [Concomitant]
     Dates: start: 20050401
  11. DURAGESIC-100 [Concomitant]
     Indication: ARTHRALGIA
     Dates: start: 20060901
  12. TOPROL-XL [Concomitant]
     Dates: start: 20061124
  13. FENTANYL TRANSDERMAL SYSTEM [Concomitant]
     Dates: start: 20060327
  14. VITAMIN B [Concomitant]
  15. KELP [Concomitant]
  16. NAPROXEN [Concomitant]
  17. WELLBUTRIN XL [Concomitant]
  18. GABAPENTIN [Concomitant]
  19. VITAMIN D [Concomitant]
  20. AMBIEN [Concomitant]
  21. VIAGRA [Concomitant]
  22. LEXAPRO [Concomitant]
  23. STRATTERA [Concomitant]
  24. KLONOPIN [Concomitant]
     Indication: INSOMNIA
  25. REQUIP [Concomitant]
     Dates: start: 20041222, end: 20050701
  26. TRAZODONE HCL [Concomitant]
     Indication: RESTLESS LEGS SYNDROME
  27. SINEMET [Concomitant]
     Indication: RESTLESS LEGS SYNDROME
  28. UNSPECIFIED BLOOD PRESSURE MEDICATION [Concomitant]
     Indication: BLOOD PRESSURE
  29. UNSPECIFIED CHOLESTEROL LOWERING AGENT [Concomitant]
     Indication: BLOOD CHOLESTEROL INCREASED
  30. MOTRIN [Concomitant]
     Indication: ARTHRITIS
  31. TRAMADOL HCL [Concomitant]
  32. ONE A DAY VITAMIN [Concomitant]
  33. FERROUS SULFATE [Concomitant]
     Dates: end: 20060327
  34. ULTRAM [Concomitant]
     Indication: RESTLESS LEGS SYNDROME
  35. FLUOXETINE [Concomitant]
     Dates: start: 20050601
  36. RESTORIL [Concomitant]
  37. SINEMET CR [Concomitant]
     Dosage: 100/400
     Dates: start: 20050722
  38. LUNESTA [Concomitant]
     Route: 048
     Dates: start: 20050718
  39. XANAX [Concomitant]
     Indication: TREMOR
     Route: 048
     Dates: start: 20051115
  40. XANAX [Concomitant]
     Indication: ANXIETY
  41. FLU SHOT [Concomitant]
     Dates: start: 20051122
  42. SONATA [Concomitant]
     Dates: end: 20060327
  43. CLONAZEPAM [Concomitant]
     Dates: end: 20061001
  44. VITAMIN B COMPLEX CAP [Concomitant]
     Dates: start: 20060925
  45. PNEUMOVAX 23 [Concomitant]
     Dates: start: 20060925
  46. TDAP [Concomitant]
     Dates: start: 20060925
  47. BL ONE 50 PLUS [Concomitant]
  48. METOPROLOL SUCCINATE [Concomitant]
     Dosage: 50MG
     Route: 048
  49. GLUCOSAMINE [Concomitant]
  50. FRAGMIN [Concomitant]
     Indication: THROMBOSIS PROPHYLAXIS
     Route: 058
     Dates: start: 20060421, end: 20060428
  51. OXYCODONE HCL [Concomitant]
     Indication: PAIN
     Route: 048
     Dates: start: 20060421
  52. COLACE [Concomitant]
     Route: 048
     Dates: start: 20060421
  53. PEPCID [Concomitant]
     Dates: start: 20060421
  54. ORTHOVISC INJECTION [Concomitant]
     Indication: PAIN
     Dates: start: 20070116
  55. SYNVISC [Concomitant]
     Indication: ARTHRALGIA
  56. LORAZEPAM [Concomitant]
  57. GABAPENTIN [Concomitant]
  58. HUMALOG [Concomitant]
     Dates: start: 20070425

REACTIONS (16)
  - ATTENTION DEFICIT/HYPERACTIVITY DISORDER [None]
  - BLOOD CHOLESTEROL INCREASED [None]
  - CONVULSION [None]
  - DEPRESSION [None]
  - EMOTIONAL DISTRESS [None]
  - FALL [None]
  - HYPERPHAGIA [None]
  - HYPERTENSION [None]
  - IMPULSE-CONTROL DISORDER [None]
  - INJURY [None]
  - LOSS OF CONSCIOUSNESS [None]
  - OBSESSIVE-COMPULSIVE DISORDER [None]
  - PANIC DISORDER [None]
  - PATHOLOGICAL GAMBLING [None]
  - TYPE 2 DIABETES MELLITUS [None]
  - WEIGHT INCREASED [None]
